FAERS Safety Report 4810852-9 (Version None)
Quarter: 2005Q4

REPORT INFORMATION
  Report Type: 
  Country: None (occurrence: None)
  Receive Date: 20051025
  Receipt Date: 20051013
  Transmission Date: 20060501
  Serious: No
  Sender: FDA-Public Use
  Company Number: TPA2005A01253

PATIENT
  Age: 43 Year
  Sex: Female
  Weight: 95.2554 kg

DRUGS (3)
  1. ACTOS [Suspect]
     Indication: DIABETES MELLITUS NON-INSULIN-DEPENDENT
     Dosage: 15 MG, 1 IN 1 D, PER ORAL
     Route: 048
     Dates: start: 20051007
  2. LISINOPRIL [Concomitant]
  3. METFORMIN HCL [Concomitant]

REACTIONS (4)
  - BLOOD GLUCOSE INCREASED [None]
  - COUGH [None]
  - PHARYNGOLARYNGEAL PAIN [None]
  - POOR QUALITY DRUG ADMINISTERED [None]
